FAERS Safety Report 5417210-7 (Version None)
Quarter: 2007Q3

REPORT INFORMATION
  Report Type: 
  Country: None (occurrence: None)
  Receive Date: 20070816
  Receipt Date: 20070809
  Transmission Date: 20080115
  Serious: Yes (Hospitalization)
  Sender: FDA-Public Use
  Company Number: JP-JNJFOC-20070601897

PATIENT
  Sex: Female

DRUGS (13)
  1. REMICADE [Suspect]
     Route: 042
  2. REMICADE [Suspect]
     Route: 042
  3. REMICADE [Suspect]
     Indication: RHEUMATOID ARTHRITIS
     Route: 042
  4. RHEUMATREX [Concomitant]
     Indication: RHEUMATOID ARTHRITIS
     Route: 048
  5. PREDNISOLONE [Concomitant]
     Indication: ANALGESIA
     Route: 048
  6. CYTOTEC [Concomitant]
     Route: 048
  7. BONALON [Concomitant]
     Route: 048
  8. INTEBAN [Concomitant]
  9. RABEPRAZOLE SODIUM [Concomitant]
     Route: 048
  10. SUCRALFATE [Concomitant]
     Route: 048
  11. NORVASC [Concomitant]
     Route: 048
  12. ARTIST [Concomitant]
     Route: 048
  13. URINORM [Concomitant]

REACTIONS (2)
  - PNEUMOCYSTIS JIROVECI PNEUMONIA [None]
  - RENAL FAILURE [None]
